FAERS Safety Report 17501757 (Version 3)
Quarter: 2022Q2

REPORT INFORMATION
  Report Type: Spontaneous
  Country: US (occurrence: US)
  Receive Date: 20200305
  Receipt Date: 20220607
  Transmission Date: 20220721
  Serious: Yes (Other)
  Sender: FDA-Public Use
  Company Number: US-PFIZER INC-2020096540

PATIENT
  Age: 74 Year
  Sex: Female
  Weight: 86 kg

DRUGS (3)
  1. XELJANZ XR [Suspect]
     Active Substance: TOFACITINIB CITRATE
     Indication: Rheumatoid arthritis
     Dosage: 11 MG, 1X/DAY
     Route: 048
  2. XELJANZ XR [Suspect]
     Active Substance: TOFACITINIB CITRATE
     Dosage: 11 MG, ALTERNATE DAY (EVERY OTHER DAY)
  3. XELJANZ XR [Suspect]
     Active Substance: TOFACITINIB CITRATE
     Dosage: 11 MG
     Dates: start: 2019, end: 20210523

REACTIONS (6)
  - Wrist surgery [Unknown]
  - Nasopharyngitis [Unknown]
  - Oropharyngeal pain [Recovering/Resolving]
  - Sinus congestion [Not Recovered/Not Resolved]
  - Intentional product misuse [Unknown]
  - Hypoaesthesia [Not Recovered/Not Resolved]

NARRATIVE: CASE EVENT DATE: 20200229
